FAERS Safety Report 8378653-5 (Version None)
Quarter: 2012Q2

REPORT INFORMATION
  Report Type: 
  Country: None (occurrence: None)
  Receive Date: 20120522
  Receipt Date: 20110707
  Transmission Date: 20120825
  Serious: No
  Sender: FDA-Public Use
  Company Number: US-ASTRAZENECA-2011SE40771

PATIENT
  Age: 51 Year
  Sex: Female

DRUGS (7)
  1. ROLAIDS [Concomitant]
  2. PRILOSEC [Suspect]
     Indication: DYSPEPSIA
     Route: 048
  3. ADDERALL 5 [Concomitant]
  4. CALCIUM CARBONATE [Concomitant]
  5. ALII [Concomitant]
  6. SEROQUEL [Suspect]
     Route: 048
  7. VALIUM [Concomitant]

REACTIONS (2)
  - DRUG SCREEN POSITIVE [None]
  - WRONG DRUG ADMINISTERED [None]
